FAERS Safety Report 4974622-3 (Version None)
Quarter: 2006Q1

REPORT INFORMATION
  Report Type: 
  Country: None (occurrence: None)
  Receive Date: 20060216
  Receipt Date: 20051031
  Transmission Date: 20060701
  Serious: Yes (Other)
  Sender: FDA-Public Use
  Company Number: PHEH2005US11343

PATIENT
  Age: 61 Year
  Sex: Female
  Weight: 95.2 kg

DRUGS (9)
  1. GLEEVEC [Suspect]
     Indication: CHRONIC MYELOID LEUKAEMIA
     Dosage: SEE IMAGE
     Route: 048
     Dates: start: 20050101, end: 20050101
  2. GLEEVEC [Suspect]
     Indication: CHRONIC MYELOID LEUKAEMIA
     Dosage: SEE IMAGE
     Route: 048
     Dates: start: 20050218, end: 20050101
  3. GLEEVEC [Suspect]
     Indication: CHRONIC MYELOID LEUKAEMIA
     Dosage: SEE IMAGE
     Route: 048
     Dates: start: 20050101
  4. L-THYROXINE (LEVOTHYROXINE) [Concomitant]
  5. ADVAIR DISKUS 100/50 [Concomitant]
  6. NASONEX [Concomitant]
  7. PRILOSEC [Concomitant]
  8. ALDACTONE [Concomitant]
  9. OSCAL (CALCIUM CARBONATE) [Concomitant]

REACTIONS (1)
  - RASH [None]
